FAERS Safety Report 5939540-2 (Version None)
Quarter: 2008Q4

REPORT INFORMATION
  Report Type: 
  Country: None (occurrence: None)
  Receive Date: 20081029
  Receipt Date: 20081023
  Transmission Date: 20090506
  Serious: Yes (Death)
  Sender: FDA-Public Use
  Company Number: CLOF-1000325

PATIENT
  Age: 65 Year

DRUGS (2)
  1. CLOLAR [Suspect]
     Indication: ACUTE LEUKAEMIA
     Dates: start: 20080929, end: 20081003
  2. DAUNORUBICIN HCL [Suspect]
     Indication: ACUTE MYELOID LEUKAEMIA
     Dates: start: 20080929, end: 20081003

REACTIONS (4)
  - CEREBROVASCULAR ACCIDENT [None]
  - MYOCARDIAL INFARCTION [None]
  - PANCYTOPENIA [None]
  - SUDDEN DEATH [None]
